FAERS Safety Report 24292583 (Version 1)
Quarter: 2024Q3

REPORT INFORMATION
  Report Type: Spontaneous
  Country: RU (occurrence: None)
  Receive Date: 20240906
  Receipt Date: 20240906
  Transmission Date: 20241016
  Serious: Yes (Other)
  Sender: Public
  Company Number: None

PATIENT
  Age: 5 Year
  Sex: Male
  Weight: 21 kg

DRUGS (5)
  1. ELEVIDYS [Suspect]
     Active Substance: DELANDISTROGENE MOXEPARVOVEC-ROKL
     Indication: Duchenne muscular dystrophy
     Dosage: OTHER FREQUENCY : SINGLE INFUSION;?
     Route: 041
     Dates: start: 20240830, end: 20240830
  2. DEFLAZACORT [Concomitant]
     Active Substance: DEFLAZACORT
     Dates: start: 20221201
  3. COENZYME Q10 [Concomitant]
     Active Substance: DIETARY SUPPLEMENT\UBIDECARENONE
  4. LEVOCARNITINE [Concomitant]
     Active Substance: LEVOCARNITINE
  5. PREDNISOLONE [Concomitant]
     Active Substance: PREDNISOLONE
     Dates: start: 20240829

REACTIONS (5)
  - Nausea [None]
  - Body temperature increased [None]
  - Vomiting [None]
  - Diarrhoea [None]
  - Myalgia [None]

NARRATIVE: CASE EVENT DATE: 20240902
